FAERS Safety Report 9534241 (Version 2)
Quarter: 2013Q3

REPORT INFORMATION
  Report Type: Spontaneous
  Country: SE (occurrence: SE)
  Receive Date: 20130918
  Receipt Date: 20130918
  Transmission Date: 20140515
  Serious: Yes (Hospitalization, Other)
  Sender: FDA-Public Use
  Company Number: SE-BAXTER-2013BAX031539

PATIENT
  Age: 41 Year
  Sex: Female

DRUGS (1)
  1. SENDOXAN 2000 MG PULVER TILL INJEKTIONSV?TSKA, L?SNING [Suspect]
     Indication: SYSTEMIC LUPUS ERYTHEMATOSUS
     Route: 065
     Dates: start: 20130619, end: 20130619

REACTIONS (4)
  - Pyrexia [Recovered/Resolved]
  - Nausea [Unknown]
  - Myalgia [Unknown]
  - Muscle swelling [Unknown]
